FAERS Safety Report 13439307 (Version 2)
Quarter: 2017Q2

REPORT INFORMATION
  Report Type: Other
  Country: CZ (occurrence: CZ)
  Receive Date: 20170413
  Receipt Date: 20170426
  Transmission Date: 20170830
  Serious: Yes (Death, Hospitalization, Other)
  Sender: FDA-Public Use
  Company Number: CZ-HIKMA PHARMACEUTICALS CO. LTD-2017CZ002690

PATIENT

DRUGS (5)
  1. IMASUP [Concomitant]
     Indication: COLITIS ULCERATIVE
     Dosage: 2-0-1, A TOTAL OF 150 MG/DAY (2.5 MG/KG)
     Route: 048
     Dates: start: 20160517, end: 20170113
  2. REMSIMA [Suspect]
     Active Substance: INFLIXIMAB
     Indication: COLITIS ULCERATIVE
     Dosage: 380 MG, 0,2,6 WEEKS
     Route: 042
     Dates: start: 20161109, end: 20161109
  3. REMSIMA [Suspect]
     Active Substance: INFLIXIMAB
     Dosage: 380 MG, 0,2,6 WEEKS
     Route: 042
     Dates: start: 20161219, end: 20161219
  4. REMSIMA [Suspect]
     Active Substance: INFLIXIMAB
     Dosage: 380 MG, 0,2,6 WEEKS
     Route: 042
     Dates: start: 20161123, end: 20161123
  5. PREDNISONE. [Concomitant]
     Active Substance: PREDNISONE
     Indication: COLITIS ULCERATIVE
     Dosage: 1.5-0-0 A TOTAL OF 30MG/DAY (1.5 MG/KG)
     Route: 048
     Dates: start: 20160514, end: 20170113

REACTIONS (4)
  - Hepatorenal failure [Fatal]
  - Pneumonia [Fatal]
  - Superinfection [Fatal]
  - Herpes zoster disseminated [Fatal]

NARRATIVE: CASE EVENT DATE: 20170113
